FAERS Safety Report 23501442 (Version 1)
Quarter: 2024Q1

REPORT INFORMATION
  Report Type: Spontaneous
  Country: US (occurrence: US)
  Receive Date: 20240208
  Receipt Date: 20240208
  Transmission Date: 20240409
  Serious: No
  Sender: FDA-Public Use
  Company Number: US-SANOFI-01929139

PATIENT
  Age: 9 Year
  Sex: Female
  Weight: 37 kg

DRUGS (1)
  1. DUPIXENT [Suspect]
     Active Substance: DUPILUMAB
     Indication: Dermatitis atopic
     Dosage: 200 MG QOW
     Dates: start: 202306

REACTIONS (3)
  - Dermatitis atopic [Unknown]
  - Therapeutic response shortened [Unknown]
  - Drug ineffective [Unknown]
